FAERS Safety Report 9513734 (Version 1)
Quarter: 2013Q3

REPORT INFORMATION
  Report Type: Spontaneous
  Country: US (occurrence: US)
  Receive Date: 20130910
  Receipt Date: 20130910
  Transmission Date: 20140515
  Serious: Yes (Hospitalization)
  Sender: FDA-Public Use
  Company Number: US-B.I. PHARMACEUTICALS,INC./RIDGEFIELD-2013-BI-27356BP

PATIENT
  Sex: Female
  Weight: 53 kg

DRUGS (5)
  1. ZANTAC (RANITIDINE HYDROCHLORIDE) [Suspect]
     Indication: DYSPEPSIA
     Route: 048
     Dates: start: 2012
  2. ZANTAC (RANITIDINE HYDROCHLORIDE) [Suspect]
     Indication: DYSPEPSIA
  3. FLAXSEED OIL [Concomitant]
     Dosage: 1200 MG
     Route: 048
  4. MULTIVITAMIN [Concomitant]
     Dosage: 1 ANZ
     Route: 048
  5. VITAMIN D [Concomitant]
     Dosage: 1000 U
     Route: 048

REACTIONS (7)
  - Myasthenia gravis crisis [Recovered/Resolved]
  - Anxiety [Recovered/Resolved]
  - Dyspnoea [Recovered/Resolved]
  - Myasthenia gravis crisis [Not Recovered/Not Resolved]
  - Dysphagia [Recovered/Resolved]
  - Abnormal loss of weight [Recovered/Resolved]
  - Dyspepsia [Recovered/Resolved]
